FAERS Safety Report 11752281 (Version 1)
Quarter: 2015Q4

REPORT INFORMATION
  Report Type: Spontaneous
  Country: NL (occurrence: NL)
  Receive Date: 20151118
  Receipt Date: 20151118
  Transmission Date: 20160304
  Serious: Yes (Hospitalization, Other)
  Sender: FDA-Public Use
  Company Number: NL-PRESTIGE BRANDS -1044402

PATIENT
  Age: 61 Year
  Sex: Male

DRUGS (1)
  1. BC [Suspect]
     Active Substance: ASPIRIN\CAFFEINE
     Indication: MUSCULOSKELETAL PAIN
     Route: 048

REACTIONS (7)
  - Hallucination, visual [None]
  - Mental status changes [None]
  - Metabolic acidosis [None]
  - Stress [None]
  - Drug abuse [None]
  - Ischaemia [None]
  - Psychotic disorder [None]
